FAERS Safety Report 21232480 (Version 1)
Quarter: 2022Q3

REPORT INFORMATION
  Report Type: Spontaneous
  Country: US (occurrence: None)
  Receive Date: 20220818
  Receipt Date: 20220818
  Transmission Date: 20221027
  Serious: Yes (Hospitalization)
  Sender: FDA-Public Use
  Company Number: None

PATIENT
  Sex: Female

DRUGS (2)
  1. EVEROLIMUS [Suspect]
     Active Substance: EVEROLIMUS
     Indication: Breast cancer
     Dosage: 7.5 MG ONCE DAILY ORAL?
     Route: 048
     Dates: start: 202108
  2. EXEMESTANE [Concomitant]

REACTIONS (6)
  - Candida infection [None]
  - Pharyngeal swelling [None]
  - Joint swelling [None]
  - Eye swelling [None]
  - Therapy interrupted [None]
  - Adverse drug reaction [None]
